FAERS Safety Report 5203074-3 (Version None)
Quarter: 2006Q4

REPORT INFORMATION
  Report Type: 
  Country: None (occurrence: None)
  Receive Date: 20061016
  Receipt Date: 20050930
  Transmission Date: 20070319
  Serious: Yes (Other)
  Sender: FDA-Public Use
  Company Number: 2005136315

PATIENT
  Age: 46 Year
  Sex: Female
  Weight: 140.6151 kg

DRUGS (5)
  1. NEURONTIN [Suspect]
     Indication: CONVULSION
  2. GABAPENTIN [Suspect]
     Indication: CONVULSION
  3. TEGRETOL [Concomitant]
  4. KEPPRA [Concomitant]
  5. TOPAMAX [Concomitant]

REACTIONS (3)
  - CONVULSION [None]
  - DRUG INEFFECTIVE [None]
  - HEADACHE [None]
